FAERS Safety Report 5068876-5 (Version None)
Quarter: 2006Q3

REPORT INFORMATION
  Report Type: 
  Country: None (occurrence: None)
  Receive Date: 20060717
  Receipt Date: 20051202
  Transmission Date: 20061208
  Serious: Yes (Hospitalization)
  Sender: FDA-Public Use
  Company Number: 2005002315

PATIENT
  Age: 79 Year
  Sex: Male

DRUGS (7)
  1. TARCEVA [Suspect]
     Indication: NON-SMALL CELL LUNG CANCER
     Dosage: SEE IMAGE
     Route: 048
     Dates: start: 20051116, end: 20060201
  2. TARCEVA [Suspect]
     Indication: NON-SMALL CELL LUNG CANCER
     Dosage: SEE IMAGE
     Route: 048
     Dates: start: 20060201
  3. LISINOPRIL [Concomitant]
  4. METOPROLOL (METOPROLOL) [Concomitant]
  5. LANOXIN [Concomitant]
  6. THERAGRAN-M (THERAGRAN-M) [Concomitant]
  7. MEGACE [Concomitant]

REACTIONS (11)
  - AGEUSIA [None]
  - ALOPECIA [None]
  - BLOOD URINE PRESENT [None]
  - DIARRHOEA [None]
  - EPISTAXIS [None]
  - FALL [None]
  - HAIR GROWTH ABNORMAL [None]
  - NAIL DISORDER [None]
  - PNEUMONIA PRIMARY ATYPICAL [None]
  - SNEEZING [None]
  - WEIGHT DECREASED [None]
